FAERS Safety Report 23417167 (Version 1)
Quarter: 2024Q1

REPORT INFORMATION
  Report Type: Spontaneous
  Country: GB (occurrence: GB)
  Receive Date: 20240118
  Receipt Date: 20240118
  Transmission Date: 20240410
  Serious: Yes (Hospitalization)
  Sender: FDA-Public Use
  Company Number: None

PATIENT
  Age: 82 Year

DRUGS (2)
  1. SPIRONOLACTONE [Suspect]
     Active Substance: SPIRONOLACTONE
     Dosage: UNK
  2. TORSEMIDE [Suspect]
     Active Substance: TORSEMIDE
     Dosage: UNK

REACTIONS (2)
  - Dehydration [Recovered/Resolved]
  - Seizure [Recovered/Resolved]
